FAERS Safety Report 18242044 (Version 3)
Quarter: 2021Q4

REPORT INFORMATION
  Report Type: Spontaneous
  Country: BR (occurrence: BR)
  Receive Date: 20200908
  Receipt Date: 20211223
  Transmission Date: 20220303
  Serious: Yes (Hospitalization, Other)
  Sender: FDA-Public Use
  Company Number: BR-GLAXOSMITHKLINE-BR2020AMR176599

PATIENT
  Sex: Male
  Weight: 82 kg

DRUGS (3)
  1. TRELEGY ELLIPTA [Suspect]
     Active Substance: FLUTICASONE FUROATE\UMECLIDINIUM BROMIDE\VILANTEROL TRIFENATATE
     Indication: Chronic obstructive pulmonary disease
     Dosage: 1 PUFF(S), QD (100/62.5/25 MCG -30 DOSES)
     Route: 055
  2. ENALAPRIL [Suspect]
     Active Substance: ENALAPRIL
     Indication: Hypertension
     Dosage: 10 MG, BID
  3. CRESTOR [Concomitant]
     Active Substance: ROSUVASTATIN CALCIUM
     Indication: Blood cholesterol
     Dosage: UNK

REACTIONS (11)
  - COVID-19 [Recovered/Resolved]
  - Blood pressure fluctuation [Recovered/Resolved]
  - Thrombosis [Recovered/Resolved]
  - Fatigue [Recovered/Resolved]
  - Throat clearing [Recovered/Resolved]
  - Dyspnoea [Recovered/Resolved]
  - Influenza [Recovered/Resolved]
  - Respiratory rate increased [Recovered/Resolved]
  - Prostatic specific antigen abnormal [Unknown]
  - Cardiac disorder [Unknown]
  - Neoplasm [Recovered/Resolved]
